FAERS Safety Report 21457346 (Version 1)
Quarter: 2022Q4

REPORT INFORMATION
  Report Type: Spontaneous
  Country: ES (occurrence: ES)
  Receive Date: 20221014
  Receipt Date: 20221014
  Transmission Date: 20230113
  Serious: Yes (Other)
  Sender: FDA-Public Use
  Company Number: ES-FreseniusKabi-FK202213592

PATIENT

DRUGS (2)
  1. LIDOCAINE [Suspect]
     Active Substance: LIDOCAINE
     Indication: Product used for unknown indication
  2. EPINEPHRINE [Suspect]
     Active Substance: EPINEPHRINE
     Indication: Product used for unknown indication

REACTIONS (1)
  - Paralysis [Recovered/Resolved]
